FAERS Safety Report 7482405-8 (Version None)
Quarter: 2011Q2

REPORT INFORMATION
  Report Type: 
  Country: None (occurrence: None)
  Receive Date: 20110516
  Receipt Date: 20110505
  Transmission Date: 20111010
  Serious: Yes (Other)
  Sender: FDA-Public Use
  Company Number: GB-PFIZER INC-2011096894

PATIENT
  Age: 18 Month
  Sex: Male

DRUGS (1)
  1. BENEFIX [Suspect]
     Indication: HAEMORRHAGE
     Dosage: UNKNOWN DOSE

REACTIONS (1)
  - FACTOR IX INHIBITION [None]
